FAERS Safety Report 9219169 (Version 1)
Quarter: 2013Q1

REPORT INFORMATION
  Report Type: Spontaneous
  Country: US (occurrence: None)
  Receive Date: 20120830
  Receipt Date: 20120830
  Transmission Date: 20140127
  Serious: Yes (Other)
  Sender: FDA-Public Use
  Company Number: PHEH2012US009202

PATIENT
  Age: 48 Year
  Sex: Male
  Weight: 75.7 kg

DRUGS (2)
  1. SANDOSTATIN LAR DEPOT (OCTREOTIDE WITH POLY (D L-LACTIDE-CO-GLYCOLIDE)) SUSPENSION [Suspect]
     Indication: ACROMEGALY
     Route: 030
     Dates: start: 200505
  2. SYNTHROID (LEVOTHYROXINE SODIUM) [Concomitant]

REACTIONS (4)
  - Blood glucose decreased [None]
  - Blood cortisol decreased [None]
  - Constipation [None]
  - Fatigue [None]
